FAERS Safety Report 15211043 (Version 2)
Quarter: 2018Q4

REPORT INFORMATION
  Report Type: Report from Study
  Country: US (occurrence: US)
  Receive Date: 20180728
  Receipt Date: 20181126
  Transmission Date: 20190204
  Serious: Yes (Hospitalization)
  Sender: FDA-Public Use
  Company Number: PHEH2018US031153

PATIENT
  Age: 61 Year
  Sex: Male
  Weight: 111 kg

DRUGS (1)
  1. COSENTYX [Suspect]
     Active Substance: SECUKINUMAB
     Indication: PSORIATIC ARTHROPATHY
     Dosage: 300 MG, QMO
     Route: 058
     Dates: start: 201701

REACTIONS (5)
  - Nasopharyngitis [Unknown]
  - Drug ineffective [Unknown]
  - Hyperchlorhydria [Unknown]
  - Psoriasis [Unknown]
  - Scab [Not Recovered/Not Resolved]

NARRATIVE: CASE EVENT DATE: 20180723
